FAERS Safety Report 8415465-8 (Version None)
Quarter: 2012Q2

REPORT INFORMATION
  Report Type: 
  Country: None (occurrence: None)
  Receive Date: 20120606
  Receipt Date: 20120601
  Transmission Date: 20120825
  Serious: Yes (Death, Other)
  Sender: FDA-Public Use
  Company Number: PHHY2012NO034353

PATIENT
  Sex: Female

DRUGS (9)
  1. VITAMIN D [Concomitant]
  2. CALCIUM [Concomitant]
  3. ZOMETA [Suspect]
  4. ZOMETA [Suspect]
     Indication: OSTEOPOROSIS
  5. ZOMETA [Suspect]
     Indication: HYPERCALCAEMIA
     Dosage: 4 MG, UNK
     Route: 041
     Dates: start: 20120228, end: 20120228
  6. ANTIBIOTICS [Concomitant]
  7. ANTIMICROBIALS [Concomitant]
  8. TAMOXIFEN CITRATE [Concomitant]
  9. FEMARA [Concomitant]
     Route: 048
     Dates: end: 20120227

REACTIONS (10)
  - HAEMOLYSIS [None]
  - DEPRESSED LEVEL OF CONSCIOUSNESS [None]
  - SOMNOLENCE [None]
  - RENAL IMPAIRMENT [None]
  - UNRESPONSIVE TO STIMULI [None]
  - CONFUSIONAL STATE [None]
  - THROMBOCYTOPENIA [None]
  - PYREXIA [None]
  - RED BLOOD CELL COUNT INCREASED [None]
  - RENAL FAILURE [None]
